FAERS Safety Report 26199355 (Version 2)
Quarter: 2025Q4

REPORT INFORMATION
  Report Type: Spontaneous
  Country: US (occurrence: US)
  Receive Date: 20251225
  Receipt Date: 20251229
  Transmission Date: 20260118
  Serious: Yes (Death, Other)
  Sender: ABBVIE
  Company Number: US-ABBVIE-6606213

PATIENT
  Age: 28 Year
  Sex: Male

DRUGS (1)
  1. LEXAPRO [Suspect]
     Active Substance: ESCITALOPRAM OXALATE
     Indication: Product used for unknown indication
     Route: 048

REACTIONS (6)
  - Ventricular tachycardia [Fatal]
  - Diarrhoea [Unknown]
  - Amnesia [Unknown]
  - Confusional state [Unknown]
  - Fall [Unknown]
  - Nausea [Unknown]
